FAERS Safety Report 4386160-X (Version None)
Quarter: 2004Q2

REPORT INFORMATION
  Report Type: 
  Country: None (occurrence: None)
  Receive Date: 20040628
  Receipt Date: 20040628
  Transmission Date: 20050107
  Serious: Yes (Other)
  Sender: FDA-Public Use
  Company Number: None

PATIENT
  Age: 36 Year
  Sex: Female
  Weight: 47.6277 kg

DRUGS (4)
  1. TRIAMCINOLONE ACETONIDE [Suspect]
     Indication: DERMATITIS CONTACT
     Dosage: APPLY THINLY 2 OR 3 TIM TOPICAL
     Route: 061
     Dates: start: 20040619, end: 20040623
  2. TRIAMCINOLONE ACETONIDE [Suspect]
     Indication: RASH
     Dosage: APPLY THINLY 2 OR 3 TIM TOPICAL
     Route: 061
     Dates: start: 20040619, end: 20040623
  3. HYDROCORTISONE [Suspect]
     Indication: DERMATITIS CONTACT
     Dosage: APPLY THINLY ONCE  TOPICAL
     Route: 061
     Dates: start: 20040617, end: 20040618
  4. HYDROCORTISONE [Suspect]
     Indication: RASH
     Dosage: APPLY THINLY ONCE  TOPICAL
     Route: 061
     Dates: start: 20040617, end: 20040618

REACTIONS (1)
  - RASH [None]
